FAERS Safety Report 25941362 (Version 1)
Quarter: 2025Q4

REPORT INFORMATION
  Report Type: Spontaneous
  Country: EU (occurrence: EU)
  Receive Date: 20251020
  Receipt Date: 20251020
  Transmission Date: 20260118
  Serious: Yes (Other)
  Sender: ROCHE
  Company Number: None

PATIENT
  Age: 38 Year
  Sex: Female

DRUGS (3)
  1. XOLAIR [Suspect]
     Active Substance: OMALIZUMAB
     Indication: Urticaria chronic
     Dosage: 2 DOSAGE FORM (EVERY 4 WEEKS)
     Route: 058
     Dates: start: 20231116, end: 20240506
  2. XOLAIR [Suspect]
     Active Substance: OMALIZUMAB
     Dosage: 3 DOSAGE FORM (EVERY 4 WEEKS)
     Route: 058
     Dates: start: 20240601, end: 202504
  3. XOLAIR [Suspect]
     Active Substance: OMALIZUMAB
     Dosage: 2 DOSAGE FORM (EVERY 4 WEEKS)
     Route: 058
     Dates: start: 202505, end: 202507

REACTIONS (3)
  - Weight increased [Not Recovered/Not Resolved]
  - Headache [Recovering/Resolving]
  - Arthralgia [Recovering/Resolving]

NARRATIVE: CASE EVENT DATE: 20240101
